FAERS Safety Report 10176754 (Version 1)
Quarter: 2014Q2

REPORT INFORMATION
  Report Type: Spontaneous
  Country: AU (occurrence: None)
  Receive Date: 20140514
  Receipt Date: 20140514
  Transmission Date: 20141212
  Serious: Yes (Other)
  Sender: FDA-Public Use
  Company Number: 2014-19479

PATIENT
  Age: 84 Year
  Sex: Female

DRUGS (1)
  1. EYELEA (AFLIBERCEPT) INJECTION [Suspect]
     Indication: AGE-RELATED MACULAR DEGENERATION
     Dosage: LEFT EYE INJECTION EVERY 4 WEEKS
     Route: 031
     Dates: start: 20130115

REACTIONS (5)
  - Retinal oedema [None]
  - Musculoskeletal disorder [None]
  - Hypoaesthesia [None]
  - Inappropriate schedule of drug administration [None]
  - Pain [None]
